FAERS Safety Report 6877152-7 (Version None)
Quarter: 2010Q3

REPORT INFORMATION
  Report Type: 
  Country: None (occurrence: None)
  Receive Date: 20100727
  Receipt Date: 20100719
  Transmission Date: 20110219
  Serious: Yes (Death, Hospitalization)
  Sender: FDA-Public Use
  Company Number: DE-ROCHE-717106

PATIENT
  Sex: Female

DRUGS (2)
  1. XELODA [Suspect]
     Route: 048
     Dates: end: 20100604
  2. AVASTIN [Suspect]
     Route: 042
     Dates: end: 20100604

REACTIONS (2)
  - JAUNDICE [None]
  - MALIGNANT NEOPLASM PROGRESSION [None]
